FAERS Safety Report 21984693 (Version 1)
Quarter: 2023Q1

REPORT INFORMATION
  Report Type: Report from Study
  Country: US (occurrence: US)
  Receive Date: 20230213
  Receipt Date: 20230213
  Transmission Date: 20230418
  Serious: No
  Sender: FDA-Public Use
  Company Number: US-HRARD-2021000827

PATIENT
  Age: 56 Year
  Sex: Female

DRUGS (1)
  1. LYSODREN [Suspect]
     Active Substance: MITOTANE
     Indication: Adrenocortical carcinoma
     Dosage: 4000 MG BID
     Route: 048
     Dates: start: 20201103

REACTIONS (2)
  - Drug ineffective [Unknown]
  - Product use complaint [Not Recovered/Not Resolved]
